FAERS Safety Report 10174261 (Version 1)
Quarter: 2014Q2

REPORT INFORMATION
  Report Type: Spontaneous
  Country: US (occurrence: None)
  Receive Date: 20140514
  Receipt Date: 20140514
  Transmission Date: 20141212
  Serious: Yes (Hospitalization)
  Sender: FDA-Public Use
  Company Number: None

PATIENT
  Age: 45 Year
  Sex: Male
  Weight: 84.06 kg

DRUGS (12)
  1. 5-FU [Suspect]
     Indication: PANCREATIC CARCINOMA
     Dosage: Q 2 WEEKS.
     Dates: start: 20140501
  2. IRINOTECAN [Suspect]
     Indication: PANCREATIC CARCINOMA
     Dosage: PO, 500MG, BID.
  3. OXALIPLATIN [Suspect]
     Indication: PANCREATIC CARCINOMA
     Dosage: 172MG.
     Dates: start: 20140501
  4. LEUCOVORIN [Suspect]
     Indication: PANCREATIC CARCINOMA
     Dosage: 808MG.
     Dates: start: 20140501
  5. DEXAMETHASONE [Concomitant]
  6. LIDOCAINE-PRILOCAINE [Concomitant]
  7. MILK THISTLE [Concomitant]
  8. ONDANSETRON HCL [Concomitant]
  9. PROCHLORPERAZINE MALEATE [Concomitant]
  10. TUMERIC [Concomitant]
  11. VITAMIN D [Concomitant]
  12. ZOFRAN [Concomitant]

REACTIONS (3)
  - Pyrexia [None]
  - Muscular weakness [None]
  - Liver function test abnormal [None]
